FAERS Safety Report 16276951 (Version 1)
Quarter: 2019Q2

REPORT INFORMATION
  Report Type: Other
  Country: FR (occurrence: FR)
  Receive Date: 20190506
  Receipt Date: 20190506
  Transmission Date: 20190711
  Serious: Yes (Life-Threatening, Hospitalization)
  Sender: FDA-Public Use
  Company Number: FR-ALSI-201900187

PATIENT
  Age: 33 Year
  Sex: Female

DRUGS (6)
  1. OXYGEN. [Concomitant]
     Active Substance: OXYGEN
  2. PHENOPERIDINE [Concomitant]
     Active Substance: PHENOPERIDINE
  3. PROPOFOL. [Concomitant]
     Active Substance: PROPOFOL
  4. CARBON DIOXIDE. [Suspect]
     Active Substance: CARBON DIOXIDE
     Indication: FEMALE STERILISATION
     Route: 033
  5. ATRACURIUM [Concomitant]
     Active Substance: ATRACURIUM
  6. NITROUS OXIDE. [Concomitant]
     Active Substance: NITROUS OXIDE

REACTIONS (1)
  - Air embolism [Recovered/Resolved]
